FAERS Safety Report 8045633-9 (Version None)
Quarter: 2012Q1

REPORT INFORMATION
  Report Type: 
  Country: None (occurrence: None)
  Receive Date: 20120112
  Receipt Date: 20120112
  Transmission Date: 20120608
  Serious: Yes (Other)
  Sender: FDA-Public Use
  Company Number: None

PATIENT
  Sex: Female
  Weight: 40.3701 kg

DRUGS (1)
  1. PROCYCLIDINE HYDROCHLORIDE 5MG TAB [Suspect]
     Indication: DYSTONIA
     Dosage: 2.5 MG 2X PER DAY W/FOOD

REACTIONS (2)
  - HAEMORRHAGE [None]
  - VOMITING [None]
